FAERS Safety Report 5912068-1 (Version None)
Quarter: 2008Q4

REPORT INFORMATION
  Report Type: 
  Country: None (occurrence: None)
  Receive Date: 20081003
  Receipt Date: 20081003
  Transmission Date: 20090506
  Serious: Yes (Other)
  Sender: FDA-Public Use
  Company Number: None

PATIENT
  Age: 45 Year
  Sex: Female
  Weight: 54.4316 kg

DRUGS (1)
  1. AMBRISENTAN 5MG GILEAD [Suspect]
     Indication: PULMONARY HYPERTENSION
     Dosage: 5MG DAILY PO
     Route: 048
     Dates: start: 20080507, end: 20081001

REACTIONS (4)
  - DIZZINESS [None]
  - LOSS OF CONSCIOUSNESS [None]
  - SYNCOPE [None]
  - UNRESPONSIVE TO STIMULI [None]
